FAERS Safety Report 7768525-9 (Version None)
Quarter: 2011Q3

REPORT INFORMATION
  Report Type: 
  Country: None (occurrence: None)
  Receive Date: 20110922
  Receipt Date: 20101018
  Transmission Date: 20111222
  Serious: No
  Sender: FDA-Public Use
  Company Number: US-ASTRAZENECA-2010SE46979

PATIENT
  Age: 52 Year
  Sex: Female

DRUGS (1)
  1. SEROQUEL [Suspect]
     Indication: BIPOLAR DISORDER
     Route: 048

REACTIONS (7)
  - PSYCHOTIC DISORDER [None]
  - FEELING ABNORMAL [None]
  - ANGER [None]
  - BIPOLAR DISORDER [None]
  - DRUG DOSE OMISSION [None]
  - DEPRESSION [None]
  - MALAISE [None]
